FAERS Safety Report 6033268-9 (Version None)
Quarter: 2009Q1

REPORT INFORMATION
  Report Type: 
  Country: None (occurrence: None)
  Receive Date: 20090109
  Receipt Date: 20090106
  Transmission Date: 20090719
  Serious: Yes (Hospitalization)
  Sender: FDA-Public Use
  Company Number: US-JNJFOC-20090101104

PATIENT
  Age: 90 Year
  Sex: Male
  Weight: 81.65 kg

DRUGS (4)
  1. TYLENOL (CAPLET) [Suspect]
     Route: 048
  2. TYLENOL (CAPLET) [Suspect]
     Indication: MUSCULOSKELETAL PAIN
     Route: 048
  3. COUMADIN [Concomitant]
     Indication: HYPOTENSION
     Dosage: ^FOR MANY YEARS^
  4. MORPHINE [Concomitant]

REACTIONS (2)
  - DRUG INEFFECTIVE [None]
  - HALLUCINATION [None]
